FAERS Safety Report 18221599 (Version 1)
Quarter: 2020Q3

REPORT INFORMATION
  Report Type: Report from Study
  Country: US (occurrence: US)
  Receive Date: 20200902
  Receipt Date: 20200902
  Transmission Date: 20201103
  Serious: Yes (Hospitalization, Other)
  Sender: FDA-Public Use
  Company Number: US-EMD SERONO-9180880

PATIENT
  Age: 73 Year
  Sex: Female

DRUGS (2)
  1. REBIF [Suspect]
     Active Substance: INTERFERON BETA-1A
     Route: 058
     Dates: start: 20130125, end: 20200715
  2. REBIF [Suspect]
     Active Substance: INTERFERON BETA-1A
     Indication: MULTIPLE SCLEROSIS
     Route: 058
     Dates: start: 20040101, end: 20051125

REACTIONS (5)
  - Sepsis [Unknown]
  - Urinary tract infection [Unknown]
  - Treatment noncompliance [Unknown]
  - Cellulitis [Unknown]
  - Insurance issue [Unknown]

NARRATIVE: CASE EVENT DATE: 202007
